FAERS Safety Report 10318241 (Version 2)
Quarter: 2015Q1

REPORT INFORMATION
  Report Type: Other
  Country: US (occurrence: US)
  Receive Date: 20140719
  Receipt Date: 20150319
  Transmission Date: 20150720
  Serious: Yes (Other)
  Sender: FDA-Public Use
  Company Number: US-GSKPPD-2014GSK011312

PATIENT
  Age: 61 Year
  Sex: Male

DRUGS (8)
  1. ECOTRIN [Concomitant]
     Active Substance: ASPIRIN
  2. SOTALOL. [Concomitant]
     Active Substance: SOTALOL
  3. NORVASC [Concomitant]
     Active Substance: AMLODIPINE BESYLATE
  4. HYZAAR [Concomitant]
     Active Substance: HYDROCHLOROTHIAZIDE\LOSARTAN POTASSIUM
  5. MAGNESIUM MALATE [Concomitant]
  6. LISINOPRIL. [Concomitant]
     Active Substance: LISINOPRIL
  7. AVANDIA [Suspect]
     Active Substance: ROSIGLITAZONE MALEATE
     Indication: DIABETES MELLITUS
     Dosage: DATES OF AVANDIA USE COULD NOT BE CONFIRMED IN RECORDS REVIEWED.
     Route: 048
  8. LASIX [Concomitant]
     Active Substance: FUROSEMIDE

REACTIONS (1)
  - Cardiac failure congestive [Unknown]

NARRATIVE: CASE EVENT DATE: 20030814
